FAERS Safety Report 26194274 (Version 1)
Quarter: 2025Q4

REPORT INFORMATION
  Report Type: Spontaneous
  Country: EU (occurrence: EU)
  Receive Date: 20251224
  Receipt Date: 20251224
  Transmission Date: 20260118
  Serious: Yes (Death, Hospitalization)
  Sender: ELI LILLY AND COMPANY
  Company Number: EU-GILEAD-2025-0739140

PATIENT
  Sex: Male
  Weight: 73 kg

DRUGS (15)
  1. PEMETREXED [Suspect]
     Active Substance: PEMETREXED
     Indication: Non-small cell lung cancer
     Dosage: 950 MG, UNKNOWN
     Route: 042
     Dates: start: 20251127
  2. CARBOPLATIN [Suspect]
     Active Substance: CARBOPLATIN
     Indication: Non-small cell lung cancer
     Dosage: 550.1 MG, UNKNOWN
     Route: 042
     Dates: start: 20251127
  3. PEMBROLIZUMAB [Suspect]
     Active Substance: PEMBROLIZUMAB
     Indication: Non-small cell lung cancer
     Dosage: 200 MG, UNKNOWN
     Route: 042
     Dates: start: 20251127
  4. ATORVASTATIN [Concomitant]
     Active Substance: ATORVASTATIN
     Indication: Peripheral arterial occlusive disease
     Dosage: UNK
     Route: 048
     Dates: start: 2020
  5. CANDESARTAN [Concomitant]
     Active Substance: CANDESARTAN
     Indication: Cardiac failure chronic
     Dosage: UNK
     Route: 048
     Dates: start: 2023
  6. ARCOXIA [Concomitant]
     Active Substance: ETORICOXIB
     Indication: Spondylolisthesis
     Dosage: UNK
     Route: 048
     Dates: start: 2025
  7. FOLATE SODIUM [Concomitant]
     Active Substance: FOLATE SODIUM
     Indication: Premedication
     Dosage: UNK
     Route: 048
     Dates: start: 202510
  8. METAMIZOL 1A PHARMA [Concomitant]
     Indication: Chest pain
     Dosage: UNK
     Route: 048
     Dates: start: 20251105
  9. NALOXONE HYDROCHLORIDE\TILIDINE HYDROCHLORIDE [Concomitant]
     Active Substance: NALOXONE HYDROCHLORIDE\TILIDINE HYDROCHLORIDE
     Indication: Chest pain
     Dosage: UNK
     Route: 048
     Dates: start: 20251105
  10. DEXAMETHASON ABZ [Concomitant]
     Indication: Premedication
     Dosage: UNK
     Route: 048
     Dates: start: 20251126
  11. CIMETIDINE [Concomitant]
     Active Substance: CIMETIDINE
     Indication: Premedication
     Dosage: UNK
     Route: 042
     Dates: start: 20251127
  12. DIMETHINDENE [Concomitant]
     Active Substance: DIMETHINDENE
     Indication: Premedication
     Dosage: UNK
     Route: 042
     Dates: start: 20251127
  13. PALONOSETRON [Concomitant]
     Active Substance: PALONOSETRON
     Indication: Premedication
     Dosage: UNK
     Route: 042
     Dates: start: 20251127
  14. CYANOCOBALAMIN [Concomitant]
     Active Substance: CYANOCOBALAMIN
     Indication: Premedication
     Dosage: UNK
     Route: 058
     Dates: start: 20251127
  15. ZIEXTENZO [Concomitant]
     Active Substance: PEGFILGRASTIM-BMEZ
     Indication: Prophylaxis
     Dosage: UNK
     Route: 058
     Dates: start: 20251130

REACTIONS (2)
  - Duodenal ulcer haemorrhage [Fatal]
  - Nausea [Not Recovered/Not Resolved]

NARRATIVE: CASE EVENT DATE: 20251201
